FAERS Safety Report 6134295-3 (Version None)
Quarter: 2009Q1

REPORT INFORMATION
  Report Type: 
  Country: None (occurrence: None)
  Receive Date: 20090325
  Receipt Date: 20090317
  Transmission Date: 20090719
  Serious: Yes (Hospitalization)
  Sender: FDA-Public Use
  Company Number: CIP09000679

PATIENT
  Age: 57 Year
  Sex: Female

DRUGS (2)
  1. NITROFURANTOIN [Suspect]
     Indication: URINARY TRACT INFECTION
     Dosage: ORAL
     Route: 048
  2. BETA-2 (TERBUTALINE SULFATE) [Concomitant]

REACTIONS (10)
  - BLOOD CREATINE PHOSPHOKINASE INCREASED [None]
  - DYSURIA [None]
  - EOSINOPHILIA [None]
  - HEPATITIS [None]
  - LEUKOCYTURIA [None]
  - MICTURITION URGENCY [None]
  - POLLAKIURIA [None]
  - PYREXIA [None]
  - RENAL IMPAIRMENT [None]
  - TUBULOINTERSTITIAL NEPHRITIS [None]
